FAERS Safety Report 9671786 (Version 2)
Quarter: 2013Q4

REPORT INFORMATION
  Report Type: Spontaneous
  Country: CH (occurrence: CH)
  Receive Date: 20131106
  Receipt Date: 20131106
  Transmission Date: 20140711
  Serious: Yes (Other)
  Sender: FDA-Public Use
  Company Number: PHHY2013CH118867

PATIENT
  Sex: Male

DRUGS (4)
  1. TASIGNA [Suspect]
     Dosage: 300 MG, BID
     Dates: start: 20110718, end: 20131018
  2. SURMONTIL                               /UNK/ [Concomitant]
     Indication: SLEEP DISORDER
     Dosage: 100 MG, UNK
     Route: 048
  3. XANAX [Concomitant]
     Indication: SEDATION
     Dosage: 1 MG, UNK
     Route: 048
  4. COSAAR [Concomitant]
     Indication: BLOOD PRESSURE
     Dosage: 100/25 MG
     Route: 048

REACTIONS (3)
  - Peripheral artery stenosis [Recovering/Resolving]
  - Myalgia [Unknown]
  - Insomnia [Unknown]
